FAERS Safety Report 9749488 (Version 1)
Quarter: 2013Q3

REPORT INFORMATION
  Report Type: Spontaneous
  Country: GB (occurrence: None)
  Receive Date: 20130912
  Receipt Date: 20130912
  Transmission Date: 20140515
  Serious: Yes (Hospitalization, Other)
  Sender: FDA-Public Use
  Company Number: AUR-APL-2013-07371

PATIENT
  Age: 92 Year
  Sex: Female

DRUGS (4)
  1. AMOXICILLIN (AMOXICILLIN) [Suspect]
     Indication: LOWER RESPIRATORY TRACT INFECTION
     Dosage: 750 MG (250 MG, 3 IN 1 D), ORAL
     Route: 048
     Dates: start: 20130627, end: 20120703
  2. DOMPERIDONE (DOMPERIDONE) [Concomitant]
  3. NITRAZEPAM (NITRAZEPAM) [Concomitant]
  4. SENNA EXTRACT (SENNA ALEXANDRINA) [Concomitant]

REACTIONS (4)
  - Treatment failure [None]
  - Lower respiratory tract infection [None]
  - Condition aggravated [None]
  - Haemoglobin decreased [None]
